APPROVED DRUG PRODUCT: COUMADIN
Active Ingredient: WARFARIN SODIUM
Strength: 3MG
Dosage Form/Route: TABLET;ORAL
Application: N009218 | Product #025
Applicant: BRISTOL MYERS SQUIBB PHARMA CO
Approved: Nov 18, 1996 | RLD: Yes | RS: No | Type: DISCN